FAERS Safety Report 18118244 (Version 1)
Quarter: 2020Q3

REPORT INFORMATION
  Report Type: Spontaneous
  Country: CA (occurrence: CA)
  Receive Date: 20200806
  Receipt Date: 20200806
  Transmission Date: 20201103
  Serious: Yes (Disabling)
  Sender: FDA-Public Use
  Company Number: CA-ACCORD-194419

PATIENT
  Sex: Female

DRUGS (13)
  1. METHOTREXATE. [Suspect]
     Active Substance: METHOTREXATE
     Indication: RHEUMATOID ARTHRITIS
     Dosage: FREQUENCY: 1 EVERY 1 WEEKS
     Route: 048
  2. RITUXIMAB. [Suspect]
     Active Substance: RITUXIMAB
     Indication: RHEUMATOID ARTHRITIS
     Dosage: FREQUENCY: 2 EVERY 1 DAYS
  3. METHOTREXATE. [Suspect]
     Active Substance: METHOTREXATE
     Indication: RHEUMATOID ARTHRITIS
     Dosage: FREQUENCY: 1 EVERY 1 WEEKS
     Route: 058
  4. METHOTREXATE. [Suspect]
     Active Substance: METHOTREXATE
     Indication: RHEUMATOID ARTHRITIS
     Dosage: FREQUENCY: 1 EVERY 1 WEEKS
     Route: 058
  5. METHOTREXATE. [Suspect]
     Active Substance: METHOTREXATE
     Indication: RHEUMATOID ARTHRITIS
     Dosage: FREQUENCY: 1 EVERY 1 WEEKS
     Route: 048
  6. TOCILIZUMAB. [Suspect]
     Active Substance: TOCILIZUMAB
     Indication: RHEUMATOID ARTHRITIS
  7. METHOTREXATE. [Suspect]
     Active Substance: METHOTREXATE
     Indication: RHEUMATOID ARTHRITIS
     Dosage: FREQUENCY: 1 EVERY 1 WEEKS
     Route: 058
  8. ALENDRONIC ACID [Concomitant]
     Active Substance: ALENDRONIC ACID
     Indication: PRODUCT USED FOR UNKNOWN INDICATION
     Dosage: FREQUENCY: 1 EVERY 1 WEEKS
  9. ORENCIA [Suspect]
     Active Substance: ABATACEPT
     Indication: RHEUMATOID ARTHRITIS
  10. ADALIMUMAB [Suspect]
     Active Substance: ADALIMUMAB
     Indication: RHEUMATOID ARTHRITIS
     Route: 058
  11. APO?LEFLUNOMIDE [Suspect]
     Active Substance: LEFLUNOMIDE
     Indication: RHEUMATOID ARTHRITIS
  12. TOCILIZUMAB. [Suspect]
     Active Substance: TOCILIZUMAB
     Indication: RHEUMATOID ARTHRITIS
  13. RITUXIMAB. [Suspect]
     Active Substance: RITUXIMAB
     Indication: RHEUMATOID ARTHRITIS
     Dosage: FREQUENCY: 1 EVERY 24 HOURS

REACTIONS (16)
  - Basal cell carcinoma [Recovered/Resolved]
  - Alanine aminotransferase increased [Recovered/Resolved]
  - Panniculitis [Recovered/Resolved]
  - Rash pruritic [Recovered/Resolved]
  - Skin ulcer [Recovered/Resolved]
  - Erythema [Recovered/Resolved]
  - Drug hypersensitivity [Unknown]
  - Rheumatoid arthritis [Recovered/Resolved]
  - Therapeutic product effect incomplete [Unknown]
  - Drug ineffective [Unknown]
  - Aspartate aminotransferase increased [Recovered/Resolved]
  - Drug eruption [Unknown]
  - Hypercalcaemia [Recovered/Resolved]
  - Peripheral swelling [Recovered/Resolved]
  - Skin necrosis [Recovered/Resolved]
  - Ulcer [Recovered/Resolved]
